FAERS Safety Report 7676851-7 (Version None)
Quarter: 2011Q3

REPORT INFORMATION
  Report Type: 
  Country: None (occurrence: None)
  Receive Date: 20110811
  Receipt Date: 20110809
  Transmission Date: 20111222
  Serious: Yes (Other)
  Sender: FDA-Public Use
  Company Number: JP-PFIZER INC-2010153958

PATIENT
  Age: 52 Year
  Sex: Female

DRUGS (1)
  1. CABERGOLINE [Suspect]
     Indication: PITUITARY TUMOUR BENIGN
     Dosage: 0.25 MG, WEEKLY
     Route: 048

REACTIONS (2)
  - NAUSEA [None]
  - RAYNAUD'S PHENOMENON [None]
